FAERS Safety Report 5904201-2 (Version None)
Quarter: 2008Q3

REPORT INFORMATION
  Report Type: 
  Country: None (occurrence: None)
  Receive Date: 20080909
  Receipt Date: 20071117
  Transmission Date: 20090109
  Serious: Yes (Other)
  Sender: FDA-Public Use
  Company Number: 163-20785-07111146

PATIENT
  Age: 73 Year
  Sex: Male
  Weight: 139 kg

DRUGS (2)
  1. THALOMID [Suspect]
     Indication: MULTIPLE MYELOMA
     Dosage: 200 MG, QD ON DAYS 1-28, EVERY 28 DAYS, ORAL
     Route: 048
     Dates: start: 20060512, end: 20060818
  2. DEXAMETHASONE TAB [Suspect]
     Indication: MULTIPLE MYELOMA
     Dosage: 40 MG, QD ON DAYS 1, 8, 15 AND 22 Q28 DAYS, ORAL
     Route: 048
     Dates: start: 20060512

REACTIONS (1)
  - OEDEMA PERIPHERAL [None]
